FAERS Safety Report 5226682-2 (Version None)
Quarter: 2007Q1

REPORT INFORMATION
  Report Type: 
  Country: None (occurrence: None)
  Receive Date: 20070201
  Receipt Date: 20070119
  Transmission Date: 20070707
  Serious: Yes (Hospitalization)
  Sender: FDA-Public Use
  Company Number: DE-ELI_LILLY_AND_COMPANY-DE200609006898

PATIENT
  Age: 29 Year
  Sex: Female

DRUGS (2)
  1. CYMBALTA [Suspect]
     Indication: DEPRESSION
     Dosage: 30 MG, EACH MORNING
     Route: 048
     Dates: start: 20060613, end: 20060613
  2. TAVOR [Concomitant]
     Dosage: 1 MG, AS NEEDED
     Route: 048
     Dates: start: 20060612

REACTIONS (3)
  - LOWER LIMB FRACTURE [None]
  - PELVIC FRACTURE [None]
  - SUICIDE ATTEMPT [None]
